FAERS Safety Report 9222711 (Version 2)
Quarter: 2013Q3

REPORT INFORMATION
  Report Type: Spontaneous
  Country: US (occurrence: US)
  Receive Date: 20130410
  Receipt Date: 20130705
  Transmission Date: 20140515
  Serious: Yes (Other)
  Sender: FDA-Public Use
  Company Number: US-PFIZER INC-2013108088

PATIENT
  Age: 47 Year
  Sex: Female
  Weight: 107 kg

DRUGS (21)
  1. NORVASC [Suspect]
     Dosage: 10 MG, ONCE A DAY
  2. LYRICA [Suspect]
     Dosage: UNK
  3. ALDACTONE [Suspect]
     Dosage: 50 MG, TWO TIMES A DAY
  4. ZOLOFT [Suspect]
     Indication: DEPRESSION
     Dosage: 100 MG, 1X/DAY
     Route: 048
  5. CLONIDINE [Concomitant]
     Dosage: UNK
  6. NITRO-DUR [Concomitant]
     Dosage: UNK
  7. FERROUS SULFATE [Concomitant]
     Dosage: 325 MG, UNK
  8. PROAIR HFA [Concomitant]
     Dosage: UNK
  9. BACLOFEN [Concomitant]
     Dosage: UNK
  10. OXCARBAZEPINE [Concomitant]
     Indication: CONVULSION
     Dosage: 150 MG, TWO TIMES A DAY
  11. RANEXA [Concomitant]
     Dosage: 500 MG, TWO TIMES A DAY
  12. NOVOLOG MIX 70/30 [Concomitant]
     Dosage: UNK, TWO TIMES A DAY
  13. BUMETANIDE [Concomitant]
     Dosage: 1 MG, TWO TIMES A DAY
  14. ALPHA LIPOIC ACID [Concomitant]
     Dosage: 600 MG, TWO TIMES A DAY
  15. MELATONIN [Concomitant]
     Dosage: 3 MG, ONCE A DAY
  16. PRAVASTATIN [Concomitant]
     Dosage: 20 MG, UNK
  17. TRIMETHOBENZAMIDE [Concomitant]
     Dosage: 300 MG, THREE TIMES A DAY
  18. CARAFATE [Concomitant]
     Dosage: 1 MG, FOUR TIMES A DAY
  19. VERAPAMIL [Concomitant]
     Dosage: 40 MG, UNK
  20. PRILOSEC [Concomitant]
     Dosage: 20 MG, UNK
  21. LIDODERM [Concomitant]
     Dosage: UNK

REACTIONS (7)
  - Cerebrovascular accident [Unknown]
  - Cerebral disorder [Unknown]
  - Memory impairment [Unknown]
  - Gait disturbance [Unknown]
  - Speech disorder [Unknown]
  - Oedema [Unknown]
  - Oedema mouth [Unknown]
